FAERS Safety Report 8985130 (Version 2)
Quarter: 2013Q1

REPORT INFORMATION
  Report Type: Report from Study
  Country: GB (occurrence: GB)
  Receive Date: 20121226
  Receipt Date: 20130207
  Transmission Date: 20140127
  Serious: Yes (Death, Hospitalization)
  Sender: FDA-Public Use
  Company Number: GB-PFIZER INC-2012325695

PATIENT
  Age: 82 Year
  Sex: Male

DRUGS (5)
  1. CELECOXIB [Suspect]
     Indication: OSTEOARTHRITIS
     Dosage: 200 MG, 2X/DAY
     Route: 048
     Dates: start: 20110427
  2. TAMSULOSIN [Concomitant]
     Dosage: 400 UG, UNK
     Dates: start: 20120213
  3. LANSOPRAZOLE [Concomitant]
     Dosage: 15 MG, 2X/DAY
     Dates: start: 20121112
  4. LAXIDO [Concomitant]
     Dosage: SACHETS, UNK
     Dates: start: 20121023
  5. RANITIDINE [Concomitant]
     Dosage: 150 MG, 2X/DAY
     Dates: start: 19980403, end: 20121111

REACTIONS (1)
  - Pancreatic carcinoma metastatic [Fatal]
